FAERS Safety Report 8408229-2 (Version None)
Quarter: 2012Q2

REPORT INFORMATION
  Report Type: 
  Country: None (occurrence: None)
  Receive Date: 20120604
  Receipt Date: 20120524
  Transmission Date: 20120825
  Serious: Yes (Hospitalization, Other)
  Sender: FDA-Public Use
  Company Number: US-ASTRAZENECA-2010SE37314

PATIENT
  Age: 76 Year
  Sex: Female

DRUGS (22)
  1. PREMARIN [Concomitant]
     Route: 048
  2. ACTYATIVUS [Concomitant]
     Dosage: 4 DF/DAY OR MORE IF NEEDED
  3. EQUATE [Concomitant]
     Dosage: 1-2 MG -2 TO 4 DAILY
     Route: 048
  4. ASPIRIN [Concomitant]
  5. FLUTICASONE PROPIONATE [Concomitant]
     Dosage: 50 MCG 2 PUFFS AT NIGHT
     Route: 045
  6. FLUPHENAZINE HCL [Concomitant]
     Dosage: 25 MG/ MLV 0.5 CC EVERY 4 WEEKS
  7. IPRATROPIUM BROMIDE [Concomitant]
  8. PULMICORT FLEXHALER [Suspect]
     Route: 055
  9. ISOSORBIDE MONONITRATE [Concomitant]
     Route: 048
  10. SIMVASTATIN [Concomitant]
     Route: 048
  11. GLUCOSAMINE [Concomitant]
  12. SYMBICORT [Suspect]
     Dosage: 80 MCG, ONE PUFF AM AND ONE PUFF PM
     Route: 055
  13. TICLOPIDINE HCL [Concomitant]
     Route: 048
  14. CALCIUM [Concomitant]
  15. LISINOPRIL [Concomitant]
     Route: 048
  16. HYDROCODON APAP [Concomitant]
     Indication: PAIN
     Dosage: 7.5-500 TAB/TO 1/2 TAB /DAY AS NEEDED
     Route: 048
  17. VERAPAMIL HCL [Concomitant]
     Route: 048
  18. SYSTANE ULTRA [Concomitant]
     Route: 065
  19. OMEPRAZOLE [Suspect]
     Route: 048
  20. COMBIVENT [Concomitant]
     Dosage: 14.7 G-200 M
  21. ALBUTEROL SULFATE [Concomitant]
  22. CLONAZEPAM [Concomitant]
     Route: 048

REACTIONS (9)
  - CORONARY ARTERY STENOSIS [None]
  - NERVOUSNESS [None]
  - FALL [None]
  - DEPRESSION [None]
  - PAIN [None]
  - ARTERIAL STENOSIS LIMB [None]
  - CAROTID ARTERY STENOSIS [None]
  - TREMOR [None]
  - CATARACT [None]
